FAERS Safety Report 6084131-9 (Version None)
Quarter: 2009Q1

REPORT INFORMATION
  Report Type: 
  Country: None (occurrence: None)
  Receive Date: 20090217
  Receipt Date: 20090205
  Transmission Date: 20090719
  Serious: Yes (Hospitalization, Other)
  Sender: FDA-Public Use
  Company Number: 2009-00090

PATIENT
  Age: 73 Year
  Sex: Female

DRUGS (3)
  1. VELCADE [Suspect]
     Indication: MULTIPLE MYELOMA
     Dosage: 1.95 MG, INTRAVENOUS
     Route: 042
     Dates: start: 20080622, end: 20090114
  2. MELPHALAN(MELPHALAN) VIAL [Suspect]
     Indication: MULTIPLE MYELOMA
     Dosage: 12 MG, ORAL
     Route: 048
     Dates: start: 20080623, end: 20081226
  3. PREDNISONE [Suspect]
     Indication: MULTIPLE MYELOMA
     Dosage: 90 MG, ORAL
     Route: 048
     Dates: start: 20080623, end: 20081226

REACTIONS (7)
  - EMPYEMA [None]
  - GASTROINTESTINAL HAEMORRHAGE [None]
  - LOBAR PNEUMONIA [None]
  - NEUTROPENIA [None]
  - PLEURAL EFFUSION [None]
  - RESPIRATORY FAILURE [None]
  - SEPSIS [None]
